FAERS Safety Report 12845806 (Version 1)
Quarter: 2016Q4

REPORT INFORMATION
  Report Type: Spontaneous
  Country: US (occurrence: US)
  Receive Date: 20161013
  Receipt Date: 20161013
  Transmission Date: 20170207
  Serious: No
  Sender: FDA-Public Use
  Company Number: US-TAIHO ONCOLOGY INC-EU-2016-02301

PATIENT
  Age: 56 Year
  Sex: Male

DRUGS (6)
  1. WARFARIN [Concomitant]
     Active Substance: WARFARIN
     Dates: start: 201607
  2. LONSURF [Suspect]
     Active Substance: TIPIRACIL HYDROCHLORIDE\TRIFLURIDINE
     Indication: COLON CANCER
     Route: 048
     Dates: start: 20160729
  3. ACETYLSALICYLIC ACID [Concomitant]
     Active Substance: ASPIRIN
     Dates: start: 201607
  4. IRON [Concomitant]
     Active Substance: IRON
     Dates: start: 201608
  5. WARFARIN [Concomitant]
     Active Substance: WARFARIN
     Dates: start: 201607
  6. FENTANYL. [Concomitant]
     Active Substance: FENTANYL
     Dates: start: 201607

REACTIONS (7)
  - Fatigue [Unknown]
  - Abdominal pain [Unknown]
  - Haemorrhage [Unknown]
  - Vomiting [Unknown]
  - Diarrhoea [Unknown]
  - Decreased appetite [Unknown]
  - Nausea [Unknown]

NARRATIVE: CASE EVENT DATE: 201608
